FAERS Safety Report 5054019-0 (Version None)
Quarter: 2006Q3

REPORT INFORMATION
  Report Type: 
  Country: None (occurrence: None)
  Receive Date: 20060713
  Receipt Date: 20060704
  Transmission Date: 20061208
  Serious: Yes (Hospitalization)
  Sender: FDA-Public Use
  Company Number: 2006-01632

PATIENT
  Age: 61 Year
  Sex: Female
  Weight: 81 kg

DRUGS (14)
  1. VELCADE [Suspect]
     Indication: MULTIPLE MYELOMA
     Dosage: 2.30 MG, INTRAVENOUS
     Route: 042
     Dates: start: 20060303, end: 20060301
  2. CHLORTHALIDONE [Concomitant]
  3. IMOVANE (ZOPICLONE) [Concomitant]
  4. KYTRIL [Concomitant]
  5. MAXOLON [Concomitant]
  6. FOLIC ACID [Concomitant]
  7. VITAMIN B6 [Concomitant]
  8. CENTRUM (VITAMINS NOS, MINERALS NOS) [Concomitant]
  9. LOPERAMIDE HYDROCHLORIDE [Concomitant]
  10. TARGOCID [Concomitant]
  11. AMIKACIN [Concomitant]
  12. CEFEPIME [Concomitant]
  13. TRAMADOL HCL [Concomitant]
  14. CIPROFLOXACIN [Concomitant]

REACTIONS (6)
  - ASTHENIA [None]
  - CAUDA EQUINA SYNDROME [None]
  - GENERAL PHYSICAL HEALTH DETERIORATION [None]
  - HERPES ZOSTER [None]
  - NAUSEA [None]
  - VOMITING [None]
